FAERS Safety Report 9099891 (Version 1)
Quarter: 2013Q1

REPORT INFORMATION
  Report Type: Spontaneous
  Country: US (occurrence: US)
  Receive Date: 20130214
  Receipt Date: 20130214
  Transmission Date: 20140127
  Serious: Yes (Hospitalization)
  Sender: FDA-Public Use
  Company Number: US-BAYER-2013-016497

PATIENT
  Age: 28 Year
  Sex: Female
  Weight: 120.64 kg

DRUGS (17)
  1. YASMIN [Suspect]
  2. OCELLA [Suspect]
  3. XOPENEX [Concomitant]
  4. SPIRIVA [Concomitant]
  5. ALLEGRA [Concomitant]
  6. TORADOL [Concomitant]
  7. ZOMIG [Concomitant]
  8. TOPAMAX [Concomitant]
  9. MIRALAX [Concomitant]
  10. RISPERDAL [Concomitant]
  11. PREVACID [Concomitant]
  12. REGLAN [Concomitant]
  13. LORAZEPAM [Concomitant]
  14. LORTAB [Concomitant]
  15. CYMBALTA [Concomitant]
  16. PULMICORT [Concomitant]
  17. SKELAXIN [Concomitant]

REACTIONS (3)
  - Thrombophlebitis superficial [None]
  - Cholecystitis chronic [None]
  - Deep vein thrombosis [None]
